FAERS Safety Report 14649634 (Version 2)
Quarter: 2018Q2

REPORT INFORMATION
  Report Type: Spontaneous
  Country: JP (occurrence: JP)
  Receive Date: 20180316
  Receipt Date: 20180530
  Transmission Date: 20180711
  Serious: Yes (Hospitalization, Other)
  Sender: FDA-Public Use
  Company Number: PHJP2018JP005705

PATIENT
  Age: 67 Year
  Sex: Female

DRUGS (4)
  1. L DOPA [Concomitant]
     Active Substance: LEVODOPA
     Indication: PARKINSON^S DISEASE
     Dosage: 100 MG, QD
     Route: 065
  2. SYMMETREL [Suspect]
     Active Substance: AMANTADINE HYDROCHLORIDE
     Indication: PARKINSON^S DISEASE
     Dosage: 300 MG, QD
     Route: 048
  3. SYMMETREL [Suspect]
     Active Substance: AMANTADINE HYDROCHLORIDE
     Dosage: UNK
     Route: 048
     Dates: end: 201710
  4. ROTIGOTINE [Concomitant]
     Active Substance: ROTIGOTINE
     Indication: PARKINSON^S DISEASE
     Dosage: 4.5 MG, QD
     Route: 065

REACTIONS (13)
  - Dysphagia [Unknown]
  - Dyskinesia [Unknown]
  - Muscle rigidity [Unknown]
  - Altered state of consciousness [Recovered/Resolved]
  - Weight decreased [Unknown]
  - Therapeutic response shortened [Unknown]
  - Drug level increased [Unknown]
  - Myoclonus [Recovered/Resolved]
  - Renal impairment [Unknown]
  - Hallucination, visual [Unknown]
  - Decreased appetite [Unknown]
  - Toxicity to various agents [Recovered/Resolved]
  - Dyslalia [Unknown]

NARRATIVE: CASE EVENT DATE: 201709
